FAERS Safety Report 7819596-2 (Version None)
Quarter: 2011Q4

REPORT INFORMATION
  Report Type: 
  Country: None (occurrence: None)
  Receive Date: 20111018
  Receipt Date: 20111018
  Transmission Date: 20120403
  Serious: Yes (Other)
  Sender: FDA-Public Use
  Company Number: None

PATIENT
  Age: 84 Year
  Sex: Female
  Weight: 77.11 kg

DRUGS (6)
  1. POTASSIUM CHLORIDE [Concomitant]
  2. MULTAQ [Suspect]
     Indication: ATRIAL FIBRILLATION
     Dosage: 400MG
     Route: 048
     Dates: start: 20110728, end: 20111001
  3. COUMADIN [Concomitant]
  4. LASIX [Concomitant]
  5. AMARYL [Concomitant]
  6. METOPROLOL TARTRATE [Concomitant]

REACTIONS (4)
  - SUICIDAL IDEATION [None]
  - DEPRESSION [None]
  - CRYING [None]
  - MIDDLE INSOMNIA [None]
